FAERS Safety Report 18045581 (Version 2)
Quarter: 2020Q3

REPORT INFORMATION
  Report Type: Spontaneous
  Country: LV (occurrence: LV)
  Receive Date: 20200720
  Receipt Date: 20200722
  Transmission Date: 20201103
  Serious: Yes (Hospitalization, Other)
  Sender: FDA-Public Use
  Company Number: LV-TEVA-2020-LV-1802266

PATIENT
  Age: 12 Year
  Sex: Female
  Weight: 21 kg

DRUGS (10)
  1. PREDNISOLONUM [Concomitant]
     Active Substance: PREDNISOLONE
     Dosage: 20 MG
  2. AZITROMICIN [Concomitant]
     Active Substance: AZITHROMYCIN
  3. CELLCEPT [Suspect]
     Active Substance: MYCOPHENOLATE MOFETIL\MYCOPHENOLATE MOFETIL HYDROCHLORIDE
     Indication: POLYARTHRITIS
     Dosage: 2 X DAY FOR ONE WEEK, 500 MG
     Route: 048
     Dates: start: 202003, end: 202003
  4. RITUXIMAB. [Suspect]
     Active Substance: RITUXIMAB
     Indication: PRODUCT USED FOR UNKNOWN INDICATION
     Dosage: THERAPY END DATE : ASKU ,375 MG/M2,ONCE WEEKLY FOR 4 WEEKS
     Route: 065
     Dates: start: 20200326
  5. BISEPTOL [Concomitant]
     Active Substance: SULFAMETHOXAZOLE\TRIMETHOPRIM
  6. ROACTEMRA [Suspect]
     Active Substance: TOCILIZUMAB
     Indication: PRODUCT USED FOR UNKNOWN INDICATION
     Dosage: 240 MG
     Route: 042
     Dates: start: 20190321, end: 202003
  7. CICLOSPORINUM [Concomitant]
     Active Substance: CYCLOSPORINE
  8. MYCOPHENOLATE MOFETIL. [Suspect]
     Active Substance: MYCOPHENOLATE MOFETIL
     Indication: POLYARTHRITIS
     Route: 065
     Dates: start: 202003, end: 202003
  9. RITUXIMAB. [Suspect]
     Active Substance: RITUXIMAB
     Dosage: 53.5714 MG/M2 DAILY; 375 MG/M2,ONCE WEEKLY FOR 4 WEEKS
     Route: 065
     Dates: start: 20200326
  10. RIVAROXABAN [Concomitant]
     Active Substance: RIVAROXABAN

REACTIONS (3)
  - Pulmonary hypertension [Not Recovered/Not Resolved]
  - Condition aggravated [Not Recovered/Not Resolved]
  - Pneumonitis [Not Recovered/Not Resolved]

NARRATIVE: CASE EVENT DATE: 202003
